FAERS Safety Report 5558437-3 (Version None)
Quarter: 2007Q4

REPORT INFORMATION
  Report Type: 
  Country: None (occurrence: None)
  Receive Date: 20071214
  Receipt Date: 20071001
  Transmission Date: 20080405
  Serious: No
  Sender: FDA-Public Use
  Company Number: US-ABBOTT-07P-163-0363968-00

PATIENT
  Sex: Female
  Weight: 68.1 kg

DRUGS (3)
  1. HUMIRA [Suspect]
     Indication: ANKYLOSING SPONDYLITIS
     Route: 058
     Dates: start: 20070101
  2. METHOTREXATE [Concomitant]
     Indication: ANKYLOSING SPONDYLITIS
     Route: 058
  3. BIRTH CONTROL PILL [Concomitant]
     Indication: HORMONE THERAPY
     Route: 048

REACTIONS (4)
  - ACCIDENTAL EXPOSURE [None]
  - INJECTION SITE NODULE [None]
  - INJECTION SITE PRURITUS [None]
  - INJECTION SITE REACTION [None]
